FAERS Safety Report 7863294-6 (Version None)
Quarter: 2011Q4

REPORT INFORMATION
  Report Type: 
  Country: None (occurrence: None)
  Receive Date: 20111027
  Receipt Date: 20101201
  Transmission Date: 20120403
  Serious: No
  Sender: FDA-Public Use
  Company Number: US-AMGEN-USASP2010007102

PATIENT
  Age: 50 Year
  Sex: Female
  Weight: 81.179 kg

DRUGS (8)
  1. FOLIC ACID [Concomitant]
     Dosage: 1 MG, UNK
  2. VITAMIN D [Concomitant]
  3. PLAQUENIL [Concomitant]
     Dosage: 200 MG, UNK
  4. ACIPHEX [Concomitant]
     Dosage: 20 MG, UNK
  5. METHOTREXATE [Concomitant]
     Dosage: 2.5 MG, UNK
  6. NASONEX [Concomitant]
     Dosage: 50 MG, UNK
  7. ALLEGRA [Concomitant]
     Dosage: 30 MG, UNK
  8. ENBREL [Suspect]
     Indication: PRODUCT USED FOR UNKNOWN INDICATION
     Dosage: 50 MG, QWK
     Route: 058

REACTIONS (2)
  - INJECTION SITE PAIN [None]
  - INJECTION SITE HAEMATOMA [None]
